FAERS Safety Report 8462038-7 (Version None)
Quarter: 2012Q2

REPORT INFORMATION
  Report Type: 
  Country: None (occurrence: None)
  Receive Date: 20120625
  Receipt Date: 20120613
  Transmission Date: 20120825
  Serious: Yes (Hospitalization)
  Sender: FDA-Public Use
  Company Number: JP-CELGENEUS-AXJPN-10-0556

PATIENT
  Sex: Female

DRUGS (4)
  1. ZOMETA [Concomitant]
     Indication: METASTASES TO BONE
     Route: 041
     Dates: start: 20100929
  2. ABRAXANE [Suspect]
     Indication: BREAST CANCER
     Route: 041
     Dates: start: 20100825, end: 20100908
  3. ZOLPIDEM [Concomitant]
     Indication: PROPHYLAXIS
     Route: 048
     Dates: start: 20100824
  4. ISODINE GARGLE [Concomitant]
     Dates: start: 20100825

REACTIONS (1)
  - HEPATIC FUNCTION ABNORMAL [None]
